FAERS Safety Report 12453963 (Version 3)
Quarter: 2016Q3

REPORT INFORMATION
  Report Type: Spontaneous
  Country: US (occurrence: US)
  Receive Date: 20160609
  Receipt Date: 20160715
  Transmission Date: 20161109
  Serious: Yes (Other)
  Sender: FDA-Public Use
  Company Number: PHEH2016US013975

PATIENT
  Sex: Female

DRUGS (3)
  1. PROMACTA [Suspect]
     Active Substance: ELTROMBOPAG OLAMINE
     Dosage: 150 MG, QD
     Route: 048
     Dates: start: 201605
  2. PROMACTA [Suspect]
     Active Substance: ELTROMBOPAG OLAMINE
     Indication: PRODUCT USED FOR UNKNOWN INDICATION
     Dosage: 50 MG, QD
     Route: 048
     Dates: start: 20160510
  3. PROMACTA [Suspect]
     Active Substance: ELTROMBOPAG OLAMINE
     Dosage: 100 MG, QD (50 MG 2 TAB A DAY)
     Route: 048
     Dates: start: 20160511

REACTIONS (9)
  - Constipation [Unknown]
  - Gastric disorder [Unknown]
  - Asthenia [Unknown]
  - Joint swelling [Unknown]
  - Peripheral swelling [Unknown]
  - Malaise [Unknown]
  - Nausea [Unknown]
  - Diverticulum [Unknown]
  - Back pain [Unknown]
